FAERS Safety Report 26111810 (Version 1)
Quarter: 2025Q4

REPORT INFORMATION
  Report Type: Spontaneous
  Country: US (occurrence: None)
  Receive Date: 20251201
  Receipt Date: 20251201
  Transmission Date: 20260117
  Serious: Yes (unspecified)
  Sender: FDA-CTU
  Company Number: None

PATIENT
  Age: 69 Year
  Sex: Female

DRUGS (1)
  1. PACLITAXEL [Suspect]
     Active Substance: PACLITAXEL
     Indication: Neoplasm malignant
     Dosage: 288 MG ONCE INTRAVENOUS DRIP?
     Route: 041
     Dates: start: 20251201, end: 20251201

REACTIONS (3)
  - Nausea [None]
  - Flushing [None]
  - Hypoaesthesia [None]

NARRATIVE: CASE EVENT DATE: 20251201
